FAERS Safety Report 18821822 (Version 5)
Quarter: 2021Q2

REPORT INFORMATION
  Report Type: Report from Study
  Country: US (occurrence: US)
  Receive Date: 20210202
  Receipt Date: 20210407
  Transmission Date: 20210717
  Serious: Yes (Other)
  Sender: FDA-Public Use
  Company Number: US-GLAXOSMITHKLINE-US2021AMR020391

PATIENT
  Sex: Female

DRUGS (1)
  1. BELANTAMAB MAFODOTIN. [Suspect]
     Active Substance: BELANTAMAB MAFODOTIN
     Indication: PRODUCT USED FOR UNKNOWN INDICATION
     Dosage: UNK, (DOSE, FREQUENCY. ONCE)
     Dates: start: 20201217, end: 20201217

REACTIONS (9)
  - Diplopia [Unknown]
  - Corneal cyst [Unknown]
  - Night blindness [Unknown]
  - Cataract [Unknown]
  - Keratopathy [Recovering/Resolving]
  - Dry eye [Unknown]
  - Corneal disorder [Not Recovered/Not Resolved]
  - Vision blurred [Unknown]
  - Visual acuity reduced [Unknown]
